FAERS Safety Report 21580606 (Version 1)
Quarter: 2022Q4

REPORT INFORMATION
  Report Type: Spontaneous
  Country: US (occurrence: US)
  Receive Date: 20221111
  Receipt Date: 20221111
  Transmission Date: 20230113
  Serious: Yes (Hospitalization)
  Sender: FDA-Public Use
  Company Number: US-JNJFOC-20221113249

PATIENT
  Sex: Male

DRUGS (15)
  1. XARELTO [Suspect]
     Active Substance: RIVAROXABAN
     Indication: Product used for unknown indication
     Route: 048
  2. MIFEPRISTONE [Interacting]
     Active Substance: MIFEPRISTONE
     Indication: Cushing^s syndrome
     Route: 048
     Dates: start: 202209
  3. MIFEPRISTONE [Interacting]
     Active Substance: MIFEPRISTONE
     Indication: Type 2 diabetes mellitus
  4. MIFEPRISTONE [Interacting]
     Active Substance: MIFEPRISTONE
     Indication: Cortisol increased
  5. ASPIRIN [Concomitant]
     Active Substance: ASPIRIN
  6. CARVEDILOL [Concomitant]
     Active Substance: CARVEDILOL
  7. FERROUS SULFATE [Concomitant]
     Active Substance: FERROUS SULFATE
  8. FUROSEMIDE [Concomitant]
     Active Substance: FUROSEMIDE
  9. GABAPENTIN [Concomitant]
     Active Substance: GABAPENTIN
  10. METFORMIN [Concomitant]
     Active Substance: METFORMIN HYDROCHLORIDE
  11. METOPROLOL [Concomitant]
     Active Substance: METOPROLOL
  12. OMEPRAZOLE [Concomitant]
     Active Substance: OMEPRAZOLE
  13. POTASSIUM CHLORIDE [Concomitant]
     Active Substance: POTASSIUM CHLORIDE
  14. ROSUVASTATIN [Concomitant]
     Active Substance: ROSUVASTATIN
  15. ERGOCALCIFEROL [Concomitant]
     Active Substance: ERGOCALCIFEROL

REACTIONS (2)
  - Deep vein thrombosis [Unknown]
  - Drug interaction [Unknown]

NARRATIVE: CASE EVENT DATE: 20221005
